FAERS Safety Report 13719122 (Version 1)
Quarter: 2017Q3

REPORT INFORMATION
  Report Type: Spontaneous
  Country: JP (occurrence: JP)
  Receive Date: 20170705
  Receipt Date: 20170705
  Transmission Date: 20171127
  Serious: Yes (Other)
  Sender: FDA-Public Use
  Company Number: JP-PFIZER INC-2017291464

PATIENT
  Age: 75 Year
  Sex: Male

DRUGS (13)
  1. MYSLEE [Concomitant]
     Active Substance: ZOLPIDEM TARTRATE
  2. LENDORMIN [Concomitant]
     Active Substance: BROTIZOLAM
  3. LYRICA [Suspect]
     Active Substance: PREGABALIN
     Indication: SPINAL PAIN
     Dosage: 25 MG, 2X/DAY
     Route: 048
     Dates: start: 2015
  4. MERISLON [Concomitant]
     Active Substance: BETAHISTINE MESILATE
  5. LYRICA [Suspect]
     Active Substance: PREGABALIN
     Dosage: 25 MG, DAILY
     Route: 048
  6. GASMOTIN [Concomitant]
     Active Substance: MOSAPRIDE CITRATE
  7. METHYCOBAL [Concomitant]
     Active Substance: METHYLCOBALAMIN
  8. LYRICA [Suspect]
     Active Substance: PREGABALIN
     Dosage: 25 MG, 2X/DAY
     Route: 048
  9. MIYA-BM [Concomitant]
     Active Substance: CLOSTRIDIUM BUTYRICUM SPORES STRAIN M-55
  10. BAYASPIRIN [Concomitant]
     Active Substance: ASPIRIN
  11. LYRICA [Suspect]
     Active Substance: PREGABALIN
     Dosage: 25 MG, DAILY
     Route: 048
  12. MAGMITT [Concomitant]
     Active Substance: MAGNESIUM OXIDE
  13. BETAMETHASONE. [Concomitant]
     Active Substance: BETAMETHASONE

REACTIONS (1)
  - Bradycardia [Recovered/Resolved]

NARRATIVE: CASE EVENT DATE: 2015
